FAERS Safety Report 19550081 (Version 1)
Quarter: 2021Q3

REPORT INFORMATION
  Report Type: Report from Study
  Country: CA (occurrence: CA)
  Receive Date: 20210715
  Receipt Date: 20210715
  Transmission Date: 20211014
  Serious: Yes (Other)
  Sender: FDA-Public Use
  Company Number: CA-JNJFOC-20210719478

PATIENT
  Age: 54 Year
  Sex: Male

DRUGS (2)
  1. SIMPONI [Suspect]
     Active Substance: GOLIMUMAB
  2. SIMPONI [Suspect]
     Active Substance: GOLIMUMAB
     Indication: ANKYLOSING SPONDYLITIS
     Route: 058
     Dates: start: 20201116, end: 20210708

REACTIONS (3)
  - Nasopharyngitis [Unknown]
  - Pain [Unknown]
  - Ankylosing spondylitis [Unknown]

NARRATIVE: CASE EVENT DATE: 2020
